FAERS Safety Report 8032339-5 (Version None)
Quarter: 2011Q4

REPORT INFORMATION
  Report Type: 
  Country: None (occurrence: None)
  Receive Date: 20111201
  Receipt Date: 20110920
  Transmission Date: 20120403
  Serious: Yes (Hospitalization)
  Sender: FDA-Public Use
  Company Number: 20110920CINRY2301

PATIENT
  Age: 47 Year
  Sex: Male

DRUGS (2)
  1. CINRYZE [Suspect]
     Indication: PROPHYLAXIS
     Dosage: (1000 IU, 2 IN 1 WK), INTRAVENOUS
     Route: 042
  2. CINRYZE [Suspect]
     Indication: HEREDITARY ANGIOEDEMA
     Dosage: (1000 IU, 2 IN 1 WK), INTRAVENOUS
     Route: 042

REACTIONS (3)
  - NASOPHARYNGITIS [None]
  - TONGUE BITING [None]
  - HEREDITARY ANGIOEDEMA [None]
